FAERS Safety Report 6187039-3 (Version None)
Quarter: 2009Q2

REPORT INFORMATION
  Report Type: 
  Country: None (occurrence: None)
  Receive Date: 20090512
  Receipt Date: 20090508
  Transmission Date: 20091009
  Serious: Yes (Other)
  Sender: FDA-Public Use
  Company Number: US-ASTRAZENECA-2009UW03726

PATIENT
  Age: 25827 Day
  Sex: Female
  Weight: 68 kg

DRUGS (2)
  1. SEROQUEL [Suspect]
     Indication: DEPRESSION
     Route: 048
     Dates: start: 20020101, end: 20040101
  2. ZYPREXA [Concomitant]
     Dates: start: 20050101

REACTIONS (6)
  - CEREBROVASCULAR ACCIDENT [None]
  - DIABETES MELLITUS [None]
  - GASTROENTERITIS VIRAL [None]
  - HYPERTENSION [None]
  - NEUROPATHY PERIPHERAL [None]
  - OVERDOSE [None]
